FAERS Safety Report 4720551-X (Version None)
Quarter: 2005Q3

REPORT INFORMATION
  Report Type: 
  Country: None (occurrence: None)
  Receive Date: 20050719
  Receipt Date: 20050705
  Transmission Date: 20060218
  Serious: Yes (Death, Hospitalization)
  Sender: FDA-Public Use
  Company Number: 2004236415US

PATIENT
  Age: 74 Year
  Sex: Female

DRUGS (5)
  1. CELEBREX [Suspect]
     Indication: ILL-DEFINED DISORDER
     Dosage: 200 MG (200 MG, 1 IN 1 D)
     Route: 048
     Dates: start: 20000105
  2. TERAZOSIN           (TERAZOSIN) [Concomitant]
  3. METOCLOPRAMIDE HYDROCHLORIDE [Concomitant]
  4. NORVASC [Concomitant]
  5. LIPITOR [Concomitant]

REACTIONS (11)
  - ABASIA [None]
  - ANAEMIA [None]
  - ATHEROSCLEROSIS [None]
  - BASILAR ARTERY STENOSIS [None]
  - CARDIOMEGALY [None]
  - CEREBELLAR INFARCTION [None]
  - CEREBROVASCULAR ACCIDENT [None]
  - CEREBROVASCULAR STENOSIS [None]
  - NAUSEA [None]
  - VERTIGO [None]
  - VOMITING [None]
